FAERS Safety Report 11126757 (Version 1)
Quarter: 2015Q2

REPORT INFORMATION
  Report Type: Spontaneous
  Country: US (occurrence: US)
  Receive Date: 20150520
  Receipt Date: 20150520
  Transmission Date: 20150821
  Serious: Yes (Hospitalization, Other)
  Sender: FDA-Public Use
  Company Number: US-TEVA-563943USA

PATIENT
  Age: 60 Year
  Sex: Male
  Weight: 82 kg

DRUGS (10)
  1. METHYLTHIONINIUM CHLORIDE [Interacting]
     Active Substance: METHYLENE BLUE
     Indication: LYMPHATIC MAPPING
     Dosage: 0.7 ML OF 1%
     Route: 058
  2. SUCCINYLCHOLINE CHLORIDE. [Concomitant]
     Active Substance: SUCCINYLCHOLINE CHLORIDE
     Indication: INDUCTION OF ANAESTHESIA
     Dosage: 120MG
     Route: 065
  3. DESFLURANE. [Concomitant]
     Active Substance: DESFLURANE
     Indication: MAINTENANCE OF ANAESTHESIA
     Dosage: 0.9-1.0 MAC
     Route: 065
  4. PROPOFOL. [Concomitant]
     Active Substance: PROPOFOL
     Indication: INDUCTION OF ANAESTHESIA
     Dosage: 180MG
     Route: 065
  5. OLMESARTAN MEDOXOMIL, HYDROCHLOROTHIAZIDE [Concomitant]
     Active Substance: HYDROCHLOROTHIAZIDE\OLMESARTAN MEDOXOMIL
     Dosage: 40-25MG DAILY
     Route: 065
  6. FENTANYL. [Suspect]
     Active Substance: FENTANYL
     Indication: INDUCTION OF ANAESTHESIA
     Route: 065
  7. AMLODIPINE [Concomitant]
     Active Substance: AMLODIPINE BESYLATE
     Dosage: 5MG DAILY
     Route: 065
  8. FLUOXETINE [Interacting]
     Active Substance: FLUOXETINE\FLUOXETINE HYDROCHLORIDE
     Dosage: 20 MILLIGRAM DAILY;
     Route: 065
  9. ESOMEPRAZOLE [Concomitant]
     Active Substance: ESOMEPRAZOLE
     Dosage: 40MG DAILY
     Route: 065
  10. FISH OIL [Concomitant]
     Active Substance: FISH OIL
     Dosage: 1000MG DAILY
     Route: 065

REACTIONS (2)
  - Serotonin syndrome [Recovered/Resolved]
  - Drug interaction [Recovered/Resolved]
